FAERS Safety Report 7197608-X (Version None)
Quarter: 2010Q4

REPORT INFORMATION
  Report Type: 
  Country: None (occurrence: None)
  Receive Date: 20101227
  Receipt Date: 20101221
  Transmission Date: 20110411
  Serious: Yes (Death)
  Sender: FDA-Public Use
  Company Number: FR-ASTRAZENECA-2010SE60173

PATIENT
  Age: 27811 Day
  Sex: Female

DRUGS (3)
  1. ATACAND [Suspect]
     Route: 048
     Dates: end: 20101201
  2. ARCOXIA [Suspect]
     Indication: BACK PAIN
     Route: 048
     Dates: start: 20101116, end: 20101201
  3. PRAVASTATIN [Suspect]
     Indication: DYSLIPIDAEMIA
     Route: 048
     Dates: end: 20101201

REACTIONS (1)
  - DEATH [None]
